FAERS Safety Report 8809411 (Version 2)
Quarter: 2015Q3

REPORT INFORMATION
  Report Type: Report from Study
  Country: US (occurrence: US)
  Receive Date: 20120926
  Receipt Date: 20150714
  Transmission Date: 20151125
  Serious: Yes (Death, Hospitalization)
  Sender: FDA-Public Use
  Company Number: US-ROCHE-1104266

PATIENT
  Age: 56 Year
  Sex: Female

DRUGS (31)
  1. HERCEPTIN [Suspect]
     Active Substance: TRASTUZUMAB
     Route: 042
  2. AVASTIN [Suspect]
     Active Substance: BEVACIZUMAB
     Route: 042
     Dates: start: 20050527
  3. ALOXI [Concomitant]
     Active Substance: PALONOSETRON HYDROCHLORIDE
     Route: 042
  4. ETHYOL [Concomitant]
     Active Substance: AMIFOSTINE
     Route: 058
  5. ARANESP [Concomitant]
     Active Substance: DARBEPOETIN ALFA
     Route: 065
  6. TAXOTERE [Concomitant]
     Active Substance: DOCETAXEL
     Route: 042
  7. CARBOPLATIN. [Concomitant]
     Active Substance: CARBOPLATIN
     Route: 042
  8. AREDIA [Concomitant]
     Active Substance: PAMIDRONATE DISODIUM
     Route: 042
  9. MITOMYCIN C [Concomitant]
     Active Substance: MITOMYCIN
     Route: 042
  10. ZOFRAN [Concomitant]
     Active Substance: ONDANSETRON HYDROCHLORIDE
     Route: 065
  11. VITAMIN B6 [Concomitant]
     Active Substance: PYRIDOXINE HYDROCHLORIDE
  12. HERCEPTIN [Suspect]
     Active Substance: TRASTUZUMAB
     Indication: PRODUCT USED FOR UNKNOWN INDICATION
     Route: 042
  13. AVASTIN [Suspect]
     Active Substance: BEVACIZUMAB
     Route: 042
  14. SOLU-MEDROL [Concomitant]
     Active Substance: METHYLPREDNISOLONE SODIUM SUCCINATE
     Route: 065
  15. BENADRYL [Concomitant]
     Active Substance: DIPHENHYDRAMINE HYDROCHLORIDE
     Route: 065
  16. ZOMETA [Concomitant]
     Active Substance: ZOLEDRONIC ACID
  17. VELBAN [Concomitant]
     Active Substance: VINBLASTINE SULFATE
     Route: 040
  18. COUMADINE [Concomitant]
     Active Substance: WARFARIN SODIUM
  19. NEURONTIN [Concomitant]
     Active Substance: GABAPENTIN
  20. AVASTIN [Suspect]
     Active Substance: BEVACIZUMAB
     Indication: BREAST CANCER FEMALE
     Route: 042
  21. ATIVAN [Concomitant]
     Active Substance: LORAZEPAM
     Route: 065
  22. NEUPOGEN [Concomitant]
     Active Substance: FILGRASTIM
     Indication: NEUTROPENIA
     Route: 065
  23. VICODIN [Concomitant]
     Active Substance: ACETAMINOPHEN\HYDROCODONE BITARTRATE
     Route: 065
  24. AVASTIN [Suspect]
     Active Substance: BEVACIZUMAB
     Route: 042
  25. TAXOL [Concomitant]
     Active Substance: PACLITAXEL
     Route: 065
  26. ARANESP [Concomitant]
     Active Substance: DARBEPOETIN ALFA
     Route: 058
  27. DOXIL [Concomitant]
     Active Substance: DOXORUBICIN HYDROCHLORIDE
     Route: 042
  28. TEMAZEPAM. [Concomitant]
     Active Substance: TEMAZEPAM
  29. DEXAMETHASONE. [Concomitant]
     Active Substance: DEXAMETHASONE
     Route: 065
  30. NEULASTA [Concomitant]
     Active Substance: PEGFILGRASTIM
     Route: 042
  31. SYNTHROID [Concomitant]
     Active Substance: LEVOTHYROXINE SODIUM
     Route: 065

REACTIONS (37)
  - Off label use [Unknown]
  - Abdominal pain [Unknown]
  - Constipation [Unknown]
  - Nausea [Unknown]
  - Gingival bleeding [Unknown]
  - Rash [Unknown]
  - Lymphoedema [Unknown]
  - Weight decreased [Unknown]
  - Insomnia [Unknown]
  - Disturbance in attention [Unknown]
  - Pain [Unknown]
  - Back pain [Unknown]
  - Small intestinal obstruction [Unknown]
  - Asthenia [Unknown]
  - Chest discomfort [Unknown]
  - Dyspnoea [Unknown]
  - Epistaxis [Unknown]
  - Incision site erythema [Unknown]
  - Death [Fatal]
  - Haematochezia [Unknown]
  - Faecaloma [Unknown]
  - Haemorrhoids [Unknown]
  - Dyspepsia [Unknown]
  - Diarrhoea [Unknown]
  - Disease progression [Unknown]
  - Gastrooesophageal reflux disease [Unknown]
  - Skin irritation [Unknown]
  - Skin lesion [Unknown]
  - Malaise [Unknown]
  - Chills [Unknown]
  - Chest pain [Unknown]
  - Catheter site pain [Unknown]
  - Paraesthesia [Unknown]
  - Hypoaesthesia [Unknown]
  - Vomiting [Unknown]
  - Rash vesicular [Unknown]
  - Pyrexia [Unknown]

NARRATIVE: CASE EVENT DATE: 200508
